FAERS Safety Report 8355740-9 (Version None)
Quarter: 2012Q2

REPORT INFORMATION
  Report Type: 
  Country: None (occurrence: None)
  Receive Date: 20120514
  Receipt Date: 20120508
  Transmission Date: 20120825
  Serious: No
  Sender: FDA-Public Use
  Company Number: US-PFIZER INC-2012112530

PATIENT
  Sex: Female
  Weight: 95.238 kg

DRUGS (6)
  1. NEXIUM [Concomitant]
     Indication: CARDIAC DISORDER
     Dosage: 40 MG, DAILY
     Dates: start: 20100101
  2. DIOVAN [Concomitant]
     Indication: BLOOD PRESSURE ABNORMAL
     Dosage: 50 MG, DAILY
     Dates: start: 20090101
  3. ASPIRIN [Concomitant]
     Indication: CARDIAC DISORDER
     Dosage: 81 MG, DAILY
     Dates: start: 20100101
  4. LEVOXYL [Concomitant]
     Indication: HYPOTHYROIDISM
     Dosage: 100 UG, DAILY
     Route: 048
  5. TOPROL-XL [Concomitant]
     Indication: CORONARY ARTERY DISEASE
     Dosage: 25 MG, DAILY
     Route: 048
     Dates: start: 20100101
  6. IBUPROFEN (ADVIL) [Suspect]
     Indication: ARTHRITIS
     Dosage: 200 MG, AS NEEDED
     Dates: start: 20120101

REACTIONS (2)
  - DIZZINESS [None]
  - NAUSEA [None]
